FAERS Safety Report 22169084 (Version 3)
Quarter: 2023Q2

REPORT INFORMATION
  Report Type: Report from Study
  Country: US (occurrence: US)
  Receive Date: 20230404
  Receipt Date: 20230613
  Transmission Date: 20230721
  Serious: Yes (Hospitalization)
  Sender: FDA-Public Use
  Company Number: US-ABBVIE-4703965

PATIENT
  Age: 72 Year
  Sex: Male
  Weight: 121.1 kg

DRUGS (3)
  1. HUMIRA [Suspect]
     Active Substance: ADALIMUMAB
     Indication: Colitis ulcerative
     Dosage: FORM STRENGTH: 40 MILLIGRAM
     Route: 058
  2. HUMIRA [Suspect]
     Active Substance: ADALIMUMAB
     Dosage: FORM STRENGTH: 40 MILLIGRAM
     Route: 058
     Dates: start: 20220511
  3. SINEMET [Concomitant]
     Active Substance: CARBIDOPA\LEVODOPA
     Indication: Product used for unknown indication

REACTIONS (9)
  - Parkinson^s disease [Unknown]
  - Gastrointestinal disorder [Unknown]
  - Asthenia [Recovering/Resolving]
  - Rehabilitation therapy [Unknown]
  - Arthritis [Unknown]
  - Physiotherapy [Unknown]
  - Dysstasia [Unknown]
  - Speech rehabilitation [Unknown]
  - Occupational therapy [Unknown]

NARRATIVE: CASE EVENT DATE: 20230218
